FAERS Safety Report 24094861 (Version 1)
Quarter: 2024Q3

REPORT INFORMATION
  Report Type: Spontaneous
  Country: CA (occurrence: CA)
  Receive Date: 20240716
  Receipt Date: 20240716
  Transmission Date: 20241016
  Serious: Yes (Other)
  Sender: CHATTEM
  Company Number: CA-SA-2023SA178180

PATIENT
  Age: 42 Year
  Sex: Female

DRUGS (6)
  1. CORTIZONE 10 EASY RELIEF [Suspect]
     Active Substance: HYDROCORTISONE
     Indication: Dermatitis atopic
     Dosage: DOSE DESCRIPTION : UNK
     Route: 065
  2. BETAMETHASONE VALERATE [Suspect]
     Active Substance: BETAMETHASONE VALERATE
     Indication: Dermatitis atopic
     Dosage: DOSE DESCRIPTION : UNK
     Route: 065
  3. DESONIDE [Suspect]
     Active Substance: DESONIDE
     Indication: Dermatitis atopic
     Dosage: DOSE DESCRIPTION : ON THE HANDS, WRISTS, FEET, AND ANKLES DAILY FOR 13 YEARS. TWELVE 30?G TUBES IN A
     Route: 061
     Dates: end: 2020
  4. DEXAMETHASONE [Suspect]
     Active Substance: DEXAMETHASONE
     Indication: Dermatitis atopic
     Dosage: DOSE DESCRIPTION : UNK
     Route: 065
  5. BETAMETHASONE DIPROPIONATE [Suspect]
     Active Substance: BETAMETHASONE DIPROPIONATE
     Dosage: DOSE DESCRIPTION : ON THE HANDS, WRISTS, FEET, AND ANKLES DAILY FOR 13 YEARS. TWELVE 30?G TUBES IN A
     Route: 061
     Dates: end: 202007
  6. FLUTICASONE FUROATE [Suspect]
     Active Substance: FLUTICASONE FUROATE
     Indication: Dermatitis atopic
     Dosage: DOSE DESCRIPTION : UNK
     Route: 055

REACTIONS (19)
  - Dermatitis atopic [Recovered/Resolved]
  - Condition aggravated [Recovered/Resolved]
  - Erythema [Recovered/Resolved]
  - Skin burning sensation [Recovered/Resolved]
  - Pain [Recovered/Resolved]
  - Swelling [Recovered/Resolved]
  - Oedema [Recovered/Resolved]
  - Paraesthesia [Recovered/Resolved]
  - Skin exfoliation [Recovered/Resolved]
  - Anhidrosis [Recovered/Resolved]
  - Madarosis [Recovered/Resolved]
  - Alopecia [Recovered/Resolved]
  - Fatigue [Recovered/Resolved]
  - Emotional distress [Recovered/Resolved]
  - Neuralgia [Recovered/Resolved]
  - Angioedema [Recovered/Resolved]
  - Topical steroid withdrawal reaction [Recovered/Resolved]
  - Incorrect product administration duration [Unknown]
  - Incorrect dose administered [Unknown]

NARRATIVE: CASE EVENT DATE: 20200101
